FAERS Safety Report 17308827 (Version 1)
Quarter: 2020Q1

REPORT INFORMATION
  Report Type: Spontaneous
  Country: US (occurrence: US)
  Receive Date: 20200123
  Receipt Date: 20200123
  Transmission Date: 20200409
  Serious: Yes (Hospitalization, Other)
  Sender: FDA-Public Use
  Company Number: US-RECKITT BENCKISER HEALTHCARE INT LIMITED-RB-80909-2020

PATIENT
  Age: 36 Year
  Sex: Female
  Weight: 77.2 kg

DRUGS (1)
  1. LYSOL [Suspect]
     Active Substance: BENZETHONIUM CHLORIDE
     Indication: SUICIDE ATTEMPT
     Route: 065

REACTIONS (7)
  - Agitation [Recovered/Resolved]
  - Metabolic acidosis [Recovered/Resolved]
  - Exposure to household chemicals [Recovered/Resolved]
  - Hyperammonaemia [Recovered/Resolved]
  - Lactic acidosis [Recovered/Resolved]
  - Aggression [Recovered/Resolved]
  - Abdominal pain upper [Recovered/Resolved]
